FAERS Safety Report 17961960 (Version 1)
Quarter: 2020Q2

REPORT INFORMATION
  Report Type: Spontaneous
  Country: GB (occurrence: GB)
  Receive Date: 20200630
  Receipt Date: 20200630
  Transmission Date: 20200714
  Serious: Yes (Hospitalization, Other)
  Sender: FDA-Public Use
  Company Number: GB-TEVA-2020-GB-1792236

PATIENT
  Age: 71 Year
  Sex: Male

DRUGS (10)
  1. ACETYLSALICYLIC ACID [Concomitant]
     Active Substance: ASPIRIN
     Dosage: 75 MG
  2. BISOPROLOL [Concomitant]
     Active Substance: BISOPROLOL
  3. SPIRONOLACTONE. [Suspect]
     Active Substance: SPIRONOLACTONE
     Dosage: 50 MG
     Route: 048
     Dates: end: 20190805
  4. APIXABAN [Concomitant]
     Active Substance: APIXABAN
  5. METFORMIN HYDROCHLORIDE. [Concomitant]
     Active Substance: METFORMIN HYDROCHLORIDE
     Dosage: 2 GRAM
  6. RAMIPRIL. [Suspect]
     Active Substance: RAMIPRIL
     Dosage: 1.25 MG
     Route: 048
     Dates: end: 20190805
  7. SIMVASTATIN. [Concomitant]
     Active Substance: SIMVASTATIN
     Dosage: 40 MG
  8. BUMETANIDE. [Suspect]
     Active Substance: BUMETANIDE
     Dosage: 2 MG
     Route: 048
     Dates: end: 20190805
  9. DIGOXIN. [Concomitant]
     Active Substance: DIGOXIN
     Dosage: OF 250MCG/5ML UNIT DOSE : 3ML
  10. LANSOPRAZOLE. [Concomitant]
     Active Substance: LANSOPRAZOLE
     Dosage: 30 MG

REACTIONS (3)
  - Diarrhoea [Unknown]
  - Acute kidney injury [Recovered/Resolved]
  - Malaise [Unknown]

NARRATIVE: CASE EVENT DATE: 20190805
